FAERS Safety Report 15778285 (Version 2)
Quarter: 2019Q1

REPORT INFORMATION
  Report Type: Spontaneous
  Country: US (occurrence: US)
  Receive Date: 20181231
  Receipt Date: 20190125
  Transmission Date: 20190417
  Serious: Yes (Hospitalization)
  Sender: FDA-Public Use
  Company Number: US-ACTELION-A-US2018-184318

PATIENT
  Age: 50 Year
  Sex: Female
  Weight: 63.39 kg

DRUGS (3)
  1. OPSUMIT [Suspect]
     Active Substance: MACITENTAN
     Indication: PULMONARY HYPERTENSION
     Dosage: 10 MG, QD
     Route: 048
  2. ORENITRAM [Suspect]
     Active Substance: TREPROSTINIL
     Indication: PRODUCT USED FOR UNKNOWN INDICATION
     Dosage: 3.75 MG, TID
     Route: 065
  3. REMODULIN [Concomitant]
     Active Substance: TREPROSTINIL
     Dosage: 12 NG/KG, PER MIN

REACTIONS (2)
  - Dyspnoea [Recovering/Resolving]
  - Pulmonary arterial hypertension [Unknown]
